FAERS Safety Report 25037196 (Version 1)
Quarter: 2025Q1

REPORT INFORMATION
  Report Type: Spontaneous
  Country: US (occurrence: US)
  Receive Date: 20250304
  Receipt Date: 20250304
  Transmission Date: 20250409
  Serious: No
  Sender: MYLAN
  Company Number: US-MYLANLABS-2025M1016323

PATIENT
  Sex: Female

DRUGS (1)
  1. WIXELA INHUB [Suspect]
     Active Substance: FLUTICASONE PROPIONATE\SALMETEROL XINAFOATE
     Indication: Respiratory disorder
     Dosage: 500/50 MICROGRAM, BID (ONE PUFF TWICE A DAY)

REACTIONS (4)
  - Off label use [Unknown]
  - Device issue [Unknown]
  - Device malfunction [Unknown]
  - Device delivery system issue [Unknown]
